FAERS Safety Report 9266063 (Version 1)
Quarter: 2013Q2

REPORT INFORMATION
  Report Type: Spontaneous
  Country: US (occurrence: US)
  Receive Date: 20130501
  Receipt Date: 20130501
  Transmission Date: 20140414
  Serious: No
  Sender: FDA-Public Use
  Company Number: US-009507513-1304USA012256

PATIENT
  Sex: Female

DRUGS (4)
  1. INVANZ [Suspect]
     Indication: HYPERSENSITIVITY
     Route: 042
  2. PEPCID [Suspect]
     Indication: HYPERSENSITIVITY
     Route: 048
  3. MEROPENEM [Suspect]
     Indication: HYPERSENSITIVITY
     Route: 042
  4. CORTICOSTEROIDS (UNSPECIFIED) [Suspect]
     Indication: HYPERSENSITIVITY

REACTIONS (2)
  - Malaise [Unknown]
  - Erythema [Unknown]
